FAERS Safety Report 13846888 (Version 1)
Quarter: 2017Q3

REPORT INFORMATION
  Report Type: Spontaneous
  Country: US (occurrence: US)
  Receive Date: 20170808
  Receipt Date: 20170808
  Transmission Date: 20171127
  Serious: No
  Sender: FDA-Public Use
  Company Number: US-SA-2017SA108260

PATIENT
  Age: 66 Year
  Sex: Female

DRUGS (1)
  1. XYZAL ALLERGY 24HR [Suspect]
     Active Substance: LEVOCETIRIZINE DIHYDROCHLORIDE
     Dosage: START DATE: 2 TO 3 MONTHS AGO
     Route: 048
     Dates: end: 20170610

REACTIONS (2)
  - Fear [Unknown]
  - Epistaxis [Unknown]

NARRATIVE: CASE EVENT DATE: 20170526
